FAERS Safety Report 4679478-4 (Version None)
Quarter: 2005Q2

REPORT INFORMATION
  Report Type: 
  Country: None (occurrence: None)
  Receive Date: 20050602
  Receipt Date: 20050520
  Transmission Date: 20051028
  Serious: Yes (Death, Hospitalization)
  Sender: FDA-Public Use
  Company Number: FR-SANOFI-SYNTHELABO-A02200501339

PATIENT
  Age: 75 Year
  Sex: Female
  Weight: 57 kg

DRUGS (6)
  1. PLAVIX [Suspect]
     Indication: DRUG USE FOR UNKNOWN INDICATION
     Dosage: UNK
     Route: 048
     Dates: start: 20050322
  2. KARDEGIC [Suspect]
     Indication: DRUG USE FOR UNKNOWN INDICATION
     Route: 048
     Dates: start: 20050323
  3. ILOMEDINE [Suspect]
     Indication: DRUG USE FOR UNKNOWN INDICATION
     Route: 042
     Dates: start: 20050305, end: 20050328
  4. AMIODARONE MERCK [Suspect]
     Indication: DRUG USE FOR UNKNOWN INDICATION
     Route: 048
  5. ENALAPRIL MERCK [Suspect]
     Indication: DRUG USE FOR UNKNOWN INDICATION
     Route: 048
  6. AMLOR [Suspect]
     Indication: DRUG USE FOR UNKNOWN INDICATION
     Route: 048

REACTIONS (1)
  - ACUTE RESPIRATORY DISTRESS SYNDROME [None]
